FAERS Safety Report 20669450 (Version 2)
Quarter: 2022Q2

REPORT INFORMATION
  Report Type: Report from Study
  Country: IT (occurrence: IT)
  Receive Date: 20220404
  Receipt Date: 20220509
  Transmission Date: 20220721
  Serious: Yes (Hospitalization)
  Sender: FDA-Public Use
  Company Number: IT-DSRSG-DS8201AU207_39021003_000001

PATIENT
  Age: 5 Decade
  Sex: Male
  Weight: 74 kg

DRUGS (11)
  1. TRASTUZUMAB DERUXTECAN [Suspect]
     Active Substance: TRASTUZUMAB DERUXTECAN
     Indication: Colorectal cancer
     Dosage: 6.4 MG/KG, ONCE EVERY 3 WK
     Route: 042
     Dates: start: 20211216, end: 20211216
  2. TRASTUZUMAB DERUXTECAN [Suspect]
     Active Substance: TRASTUZUMAB DERUXTECAN
     Dosage: 6.4 MG/KG, ONCE EVERY 3 WK
     Route: 042
     Dates: start: 20220113, end: 20220113
  3. TRASTUZUMAB DERUXTECAN [Suspect]
     Active Substance: TRASTUZUMAB DERUXTECAN
     Dosage: 5.4 MG/KG, ONCE EVERY 3 WK
     Route: 042
     Dates: start: 20220202, end: 20220202
  4. RACECADOTRIL [Concomitant]
     Active Substance: RACECADOTRIL
     Indication: Diarrhoea
     Dosage: 300 OTHER
     Route: 048
     Dates: start: 20211130, end: 20211207
  5. MONTMORILLONITE [Concomitant]
     Active Substance: MONTMORILLONITE
     Indication: Diarrhoea
     Dosage: 3 SACHET
     Route: 048
     Dates: start: 20211216
  6. PROBIOTICS [BIFIDOBACTERIUM LONGUM;LACTOBACILLUS ACIDOPHILUS;LACTOBACI [Concomitant]
     Indication: Diarrhoea
     Dosage: 1 SACHET
     Route: 048
     Dates: start: 20211216
  7. ACETAMINOPHEN [Concomitant]
     Active Substance: ACETAMINOPHEN
     Indication: Pain in extremity
     Dosage: 1000 OTHER
     Route: 048
     Dates: start: 20211109
  8. APREPITANT [Concomitant]
     Active Substance: APREPITANT
     Dosage: 125 OTHER
     Route: 048
     Dates: start: 20211216
  9. APREPITANT [Concomitant]
     Active Substance: APREPITANT
     Dosage: 80 OTHER
     Route: 048
     Dates: start: 20211217
  10. ONDANSETRON [Concomitant]
     Active Substance: ONDANSETRON
     Dosage: 8 OTHER
     Route: 042
     Dates: start: 20211216
  11. ONDANSETRON [Concomitant]
     Active Substance: ONDANSETRON
     Dosage: 8 OTHER
     Route: 048
     Dates: start: 20211216

REACTIONS (1)
  - Asthenia [Not Recovered/Not Resolved]

NARRATIVE: CASE EVENT DATE: 20211230
